FAERS Safety Report 19478712 (Version 4)
Quarter: 2022Q4

REPORT INFORMATION
  Report Type: Spontaneous
  Country: AU (occurrence: AU)
  Receive Date: 20210630
  Receipt Date: 20221019
  Transmission Date: 20230112
  Serious: Yes (Hospitalization, Other)
  Sender: FDA-Public Use
  Company Number: AU-VERTEX PHARMACEUTICALS-2021-009857

PATIENT
  Sex: Male

DRUGS (14)
  1. TRIKAFTA [Suspect]
     Active Substance: ELEXACAFTOR\IVACAFTOR\TEZACAFTOR
     Indication: Cystic fibrosis
     Dosage: RECUCED DOSE, CHILD PUGH CLASS B DOSING
     Route: 048
     Dates: start: 202010
  2. URSODIOL [Concomitant]
     Active Substance: URSODIOL
  3. FUROSEMIDE [Concomitant]
     Active Substance: FUROSEMIDE
  4. SPIRONOLACTONE [Concomitant]
     Active Substance: SPIRONOLACTONE
  5. CARVEDILOL [Concomitant]
     Active Substance: CARVEDILOL
  6. SODIUM CHLORIDE [Concomitant]
     Active Substance: SODIUM CHLORIDE
  7. DORNASE ALFA [Concomitant]
     Active Substance: DORNASE ALFA
  8. ZINC [Concomitant]
     Active Substance: ZINC
  9. FLUTICASONE PROPIONATE\SALMETEROL XINAFOATE [Concomitant]
     Active Substance: FLUTICASONE PROPIONATE\SALMETEROL XINAFOATE
  10. SODIUM CHLORIDE [Concomitant]
     Active Substance: SODIUM CHLORIDE
  11. VITAMIN K [Concomitant]
     Active Substance: PHYTONADIONE
  12. ACETAMINOPHEN [Concomitant]
     Active Substance: ACETAMINOPHEN
  13. FLUCLOXACILLIN [Concomitant]
     Active Substance: FLUCLOXACILLIN
  14. SULFAMETHOXAZOLE\TRIMETHOPRIM [Concomitant]
     Active Substance: SULFAMETHOXAZOLE\TRIMETHOPRIM

REACTIONS (3)
  - Acute hepatic failure [Not Recovered/Not Resolved]
  - Hyponatraemia [Unknown]
  - Generalised tonic-clonic seizure [Unknown]
